FAERS Safety Report 22600589 (Version 1)
Quarter: 2023Q2

REPORT INFORMATION
  Report Type: Report from Study
  Country: GB (occurrence: GB)
  Receive Date: 20230614
  Receipt Date: 20230614
  Transmission Date: 20230722
  Serious: Yes (Hospitalization, Other)
  Sender: FDA-Public Use
  Company Number: GB-ABBVIE-5288916

PATIENT
  Age: 83 Year
  Sex: Male

DRUGS (1)
  1. RINVOQ [Suspect]
     Active Substance: UPADACITINIB
     Indication: Psoriatic arthropathy
     Dosage: FORM STRENGTH: 15 MILLIGRAM
     Route: 048
     Dates: start: 2022

REACTIONS (5)
  - Knee operation [Unknown]
  - Malaise [Unknown]
  - Diabetes mellitus [Unknown]
  - Malaise [Unknown]
  - Splenectomy [Unknown]

NARRATIVE: CASE EVENT DATE: 20230101
